FAERS Safety Report 13518928 (Version 1)
Quarter: 2017Q2

REPORT INFORMATION
  Report Type: Spontaneous
  Country: US (occurrence: US)
  Receive Date: 20170505
  Receipt Date: 20170505
  Transmission Date: 20170830
  Serious: Yes (Disabling, Other)
  Sender: FDA-Public Use
  Company Number: PHHY2017US063705

PATIENT
  Age: 57 Year
  Sex: Female

DRUGS (4)
  1. PACLITAXEL. [Concomitant]
     Active Substance: PACLITAXEL
     Indication: OVARIAN CANCER
     Dosage: 135 MG/M2, UNK
     Route: 065
  2. PREDNISONE. [Suspect]
     Active Substance: PREDNISONE
     Indication: DEAFNESS
     Dosage: 60 MG, UNK
     Route: 065
  3. MANNITOL. [Concomitant]
     Active Substance: MANNITOL
     Indication: OVARIAN CANCER
     Dosage: 25 G, UNK
     Route: 065
  4. CISPLATIN. [Concomitant]
     Active Substance: CISPLATIN
     Dosage: 75 MG/M2, UNK
     Route: 065

REACTIONS (1)
  - Deafness [Recovering/Resolving]
